FAERS Safety Report 4967672-4 (Version None)
Quarter: 2006Q2

REPORT INFORMATION
  Report Type: 
  Country: None (occurrence: None)
  Receive Date: 20060405
  Receipt Date: 20060331
  Transmission Date: 20061013
  Serious: Yes (Hospitalization)
  Sender: FDA-Public Use
  Company Number: 2006044968

PATIENT
  Age: 52 Year
  Sex: Male

DRUGS (4)
  1. NORVASC [Suspect]
     Indication: HYPERTENSION
     Dosage: 5 MG (5 MG, 1 IN 1 D), ORAL
     Route: 048
     Dates: start: 20051001, end: 20051018
  2. ATENOLOL [Suspect]
     Indication: HYPERTENSION
     Dosage: 100 MG (100 MG, 1 IN 1 D), ORAL
     Route: 048
  3. COZAAR [Concomitant]
  4. XERODENT (MALIC ACID, SODIUM FLUORIDE, XYLITOL) [Concomitant]

REACTIONS (1)
  - ACUTE PSYCHOSIS [None]
